FAERS Safety Report 8785276 (Version 1)
Quarter: 2012Q4

REPORT INFORMATION
  Report Type: Spontaneous
  Country: QA (occurrence: None)
  Receive Date: 20120904
  Receipt Date: 20120904
  Transmission Date: 20130627
  Serious: Yes (Hospitalization)
  Sender: FDA-Public Use
  Company Number: DSA_59111_2012

PATIENT
  Age: 20 Year
  Sex: Male

DRUGS (1)
  1. DICLOFENAC [Suspect]
     Indication: PAIN IN EXTREMITY
     Route: 042

REACTIONS (7)
  - Injection site pain [None]
  - Injection site haemorrhage [None]
  - Injection site rash [None]
  - Injection site pain [None]
  - Skin reaction [None]
  - Compartment syndrome [None]
  - Embolia cutis medicamentosa [None]
